FAERS Safety Report 25975918 (Version 1)
Quarter: 2025Q4

REPORT INFORMATION
  Report Type: Spontaneous
  Country: EU (occurrence: EU)
  Receive Date: 20251029
  Receipt Date: 20251029
  Transmission Date: 20260117
  Serious: Yes (Congenital Anomaly, Other)
  Sender: MYLAN
  Company Number: EU-EMB-M202403109-1

PATIENT
  Sex: Female
  Weight: 2.15 kg

DRUGS (56)
  1. PREGABALIN [Suspect]
     Active Substance: PREGABALIN
     Indication: Neuralgia
     Dosage: 150 MILLIGRAM, BID (0.5 DAY)
     Dates: start: 202307, end: 202404
  2. PREGABALIN [Suspect]
     Active Substance: PREGABALIN
     Indication: Epicondylitis
     Dosage: 150 MILLIGRAM, BID (0.5 DAY)
     Dates: start: 202307, end: 202404
  3. PREGABALIN [Suspect]
     Active Substance: PREGABALIN
     Dosage: 150 MILLIGRAM, BID (0.5 DAY)
     Route: 064
     Dates: start: 202307, end: 202404
  4. PREGABALIN [Suspect]
     Active Substance: PREGABALIN
     Dosage: 150 MILLIGRAM, BID (0.5 DAY)
     Route: 064
     Dates: start: 202307, end: 202404
  5. PREGABALIN [Suspect]
     Active Substance: PREGABALIN
     Dosage: 150 MILLIGRAM, BID (0.5 DAY)
     Dates: start: 202307, end: 202404
  6. PREGABALIN [Suspect]
     Active Substance: PREGABALIN
     Dosage: 150 MILLIGRAM, BID (0.5 DAY)
     Dates: start: 202307, end: 202404
  7. PREGABALIN [Suspect]
     Active Substance: PREGABALIN
     Dosage: 150 MILLIGRAM, BID (0.5 DAY)
     Route: 064
     Dates: start: 202307, end: 202404
  8. PREGABALIN [Suspect]
     Active Substance: PREGABALIN
     Dosage: 150 MILLIGRAM, BID (0.5 DAY)
     Route: 064
     Dates: start: 202307, end: 202404
  9. LAMOTRIGINE [Suspect]
     Active Substance: LAMOTRIGINE
     Indication: Generalised tonic-clonic seizure
     Dosage: SLOWLY INCREASED; 1ST TRIMESTER: 400 MG/D (250-0-150), IN THE FURTHER COURSE INCREASE TO 1200 MG/D
     Dates: start: 202307, end: 202404
  10. LAMOTRIGINE [Suspect]
     Active Substance: LAMOTRIGINE
     Dosage: SLOWLY INCREASED; 1ST TRIMESTER: 400 MG/D (250-0-150), IN THE FURTHER COURSE INCREASE TO 1200 MG/D
     Dates: start: 202307, end: 202404
  11. LAMOTRIGINE [Suspect]
     Active Substance: LAMOTRIGINE
     Dosage: SLOWLY INCREASED; 1ST TRIMESTER: 400 MG/D (250-0-150), IN THE FURTHER COURSE INCREASE TO 1200 MG/D
     Route: 064
     Dates: start: 202307, end: 202404
  12. LAMOTRIGINE [Suspect]
     Active Substance: LAMOTRIGINE
     Dosage: SLOWLY INCREASED; 1ST TRIMESTER: 400 MG/D (250-0-150), IN THE FURTHER COURSE INCREASE TO 1200 MG/D
     Route: 064
     Dates: start: 202307, end: 202404
  13. LAMOTRIGINE [Suspect]
     Active Substance: LAMOTRIGINE
     Dosage: SLOWLY INCREASED; 1ST TRIMESTER: 400 MG/D (250-0-150), IN THE FURTHER COURSE INCREASE TO 1200 MG/D
     Dates: start: 202307, end: 202404
  14. LAMOTRIGINE [Suspect]
     Active Substance: LAMOTRIGINE
     Dosage: SLOWLY INCREASED; 1ST TRIMESTER: 400 MG/D (250-0-150), IN THE FURTHER COURSE INCREASE TO 1200 MG/D
     Dates: start: 202307, end: 202404
  15. LAMOTRIGINE [Suspect]
     Active Substance: LAMOTRIGINE
     Dosage: SLOWLY INCREASED; 1ST TRIMESTER: 400 MG/D (250-0-150), IN THE FURTHER COURSE INCREASE TO 1200 MG/D
     Route: 064
     Dates: start: 202307, end: 202404
  16. LAMOTRIGINE [Suspect]
     Active Substance: LAMOTRIGINE
     Dosage: SLOWLY INCREASED; 1ST TRIMESTER: 400 MG/D (250-0-150), IN THE FURTHER COURSE INCREASE TO 1200 MG/D
     Route: 064
     Dates: start: 202307, end: 202404
  17. FOLIC ACID [Concomitant]
     Active Substance: FOLIC ACID
     Indication: Vitamin supplementation
     Dosage: UNK
     Dates: start: 202310, end: 202404
  18. FOLIC ACID [Concomitant]
     Active Substance: FOLIC ACID
     Dosage: UNK
     Dates: start: 202310, end: 202404
  19. FOLIC ACID [Concomitant]
     Active Substance: FOLIC ACID
     Dosage: UNK
     Route: 064
     Dates: start: 202310, end: 202404
  20. FOLIC ACID [Concomitant]
     Active Substance: FOLIC ACID
     Dosage: UNK
     Route: 064
     Dates: start: 202310, end: 202404
  21. FOLIC ACID [Concomitant]
     Active Substance: FOLIC ACID
     Dosage: UNK
     Dates: start: 202310, end: 202404
  22. FOLIC ACID [Concomitant]
     Active Substance: FOLIC ACID
     Dosage: UNK
     Dates: start: 202310, end: 202404
  23. FOLIC ACID [Concomitant]
     Active Substance: FOLIC ACID
     Dosage: UNK
     Route: 064
     Dates: start: 202310, end: 202404
  24. FOLIC ACID [Concomitant]
     Active Substance: FOLIC ACID
     Dosage: UNK
     Route: 064
     Dates: start: 202310, end: 202404
  25. PERTUSSIS VACCINE [Concomitant]
     Active Substance: PERTUSSIS VACCINE
     Indication: Immunisation
     Dosage: GW UNKNOWN
  26. PERTUSSIS VACCINE [Concomitant]
     Active Substance: PERTUSSIS VACCINE
     Dosage: GW UNKNOWN
  27. PERTUSSIS VACCINE [Concomitant]
     Active Substance: PERTUSSIS VACCINE
     Dosage: GW UNKNOWN
     Route: 064
  28. PERTUSSIS VACCINE [Concomitant]
     Active Substance: PERTUSSIS VACCINE
     Dosage: GW UNKNOWN
     Route: 064
  29. PERTUSSIS VACCINE [Concomitant]
     Active Substance: PERTUSSIS VACCINE
     Dosage: GW UNKNOWN
  30. PERTUSSIS VACCINE [Concomitant]
     Active Substance: PERTUSSIS VACCINE
     Dosage: GW UNKNOWN
  31. PERTUSSIS VACCINE [Concomitant]
     Active Substance: PERTUSSIS VACCINE
     Dosage: GW UNKNOWN
     Route: 064
  32. PERTUSSIS VACCINE [Concomitant]
     Active Substance: PERTUSSIS VACCINE
     Dosage: GW UNKNOWN
     Route: 064
  33. TRAMADOL [Concomitant]
     Active Substance: TRAMADOL
     Indication: Neuralgia
     Dosage: 100 MILLIGRAM, PRN (AS NECESSARY, APPROXIMATELY 2-3X/MONTH)
     Dates: start: 202307, end: 202404
  34. TRAMADOL [Concomitant]
     Active Substance: TRAMADOL
     Indication: Epicondylitis
     Dosage: 100 MILLIGRAM, PRN (AS NECESSARY, APPROXIMATELY 2-3X/MONTH)
     Dates: start: 202307, end: 202404
  35. TRAMADOL [Concomitant]
     Active Substance: TRAMADOL
     Dosage: 100 MILLIGRAM, PRN (AS NECESSARY, APPROXIMATELY 2-3X/MONTH)
     Route: 064
     Dates: start: 202307, end: 202404
  36. TRAMADOL [Concomitant]
     Active Substance: TRAMADOL
     Dosage: 100 MILLIGRAM, PRN (AS NECESSARY, APPROXIMATELY 2-3X/MONTH)
     Route: 064
     Dates: start: 202307, end: 202404
  37. TRAMADOL [Concomitant]
     Active Substance: TRAMADOL
     Dosage: 100 MILLIGRAM, PRN (AS NECESSARY, APPROXIMATELY 2-3X/MONTH)
     Dates: start: 202307, end: 202404
  38. TRAMADOL [Concomitant]
     Active Substance: TRAMADOL
     Dosage: 100 MILLIGRAM, PRN (AS NECESSARY, APPROXIMATELY 2-3X/MONTH)
     Dates: start: 202307, end: 202404
  39. TRAMADOL [Concomitant]
     Active Substance: TRAMADOL
     Dosage: 100 MILLIGRAM, PRN (AS NECESSARY, APPROXIMATELY 2-3X/MONTH)
     Route: 064
     Dates: start: 202307, end: 202404
  40. TRAMADOL [Concomitant]
     Active Substance: TRAMADOL
     Dosage: 100 MILLIGRAM, PRN (AS NECESSARY, APPROXIMATELY 2-3X/MONTH)
     Route: 064
     Dates: start: 202307, end: 202404
  41. ACETAMINOPHEN [Concomitant]
     Active Substance: ACETAMINOPHEN
     Indication: Product used for unknown indication
     Dosage: 500 MILLIGRAM, PRN (AS NECESSARY, MIN. 2X/WK)
  42. ACETAMINOPHEN [Concomitant]
     Active Substance: ACETAMINOPHEN
     Dosage: 500 MILLIGRAM, PRN (AS NECESSARY, MIN. 2X/WK)
  43. ACETAMINOPHEN [Concomitant]
     Active Substance: ACETAMINOPHEN
     Dosage: 500 MILLIGRAM, PRN (AS NECESSARY, MIN. 2X/WK)
     Route: 064
  44. ACETAMINOPHEN [Concomitant]
     Active Substance: ACETAMINOPHEN
     Dosage: 500 MILLIGRAM, PRN (AS NECESSARY, MIN. 2X/WK)
     Route: 064
  45. ACETAMINOPHEN [Concomitant]
     Active Substance: ACETAMINOPHEN
     Dosage: 500 MILLIGRAM, PRN (AS NECESSARY, MIN. 2X/WK)
  46. ACETAMINOPHEN [Concomitant]
     Active Substance: ACETAMINOPHEN
     Dosage: 500 MILLIGRAM, PRN (AS NECESSARY, MIN. 2X/WK)
  47. ACETAMINOPHEN [Concomitant]
     Active Substance: ACETAMINOPHEN
     Dosage: 500 MILLIGRAM, PRN (AS NECESSARY, MIN. 2X/WK)
     Route: 064
  48. ACETAMINOPHEN [Concomitant]
     Active Substance: ACETAMINOPHEN
     Dosage: 500 MILLIGRAM, PRN (AS NECESSARY, MIN. 2X/WK)
     Route: 064
  49. SUMATRIPTAN [Concomitant]
     Active Substance: SUMATRIPTAN
     Indication: Migraine
     Dosage: 100 MILLIGRAM, PRN (AS NECESSARY)
  50. SUMATRIPTAN [Concomitant]
     Active Substance: SUMATRIPTAN
     Dosage: 100 MILLIGRAM, PRN (AS NECESSARY)
  51. SUMATRIPTAN [Concomitant]
     Active Substance: SUMATRIPTAN
     Dosage: 100 MILLIGRAM, PRN (AS NECESSARY)
     Route: 064
  52. SUMATRIPTAN [Concomitant]
     Active Substance: SUMATRIPTAN
     Dosage: 100 MILLIGRAM, PRN (AS NECESSARY)
     Route: 064
  53. SUMATRIPTAN [Concomitant]
     Active Substance: SUMATRIPTAN
     Dosage: 100 MILLIGRAM, PRN (AS NECESSARY)
  54. SUMATRIPTAN [Concomitant]
     Active Substance: SUMATRIPTAN
     Dosage: 100 MILLIGRAM, PRN (AS NECESSARY)
  55. SUMATRIPTAN [Concomitant]
     Active Substance: SUMATRIPTAN
     Dosage: 100 MILLIGRAM, PRN (AS NECESSARY)
     Route: 064
  56. SUMATRIPTAN [Concomitant]
     Active Substance: SUMATRIPTAN
     Dosage: 100 MILLIGRAM, PRN (AS NECESSARY)
     Route: 064

REACTIONS (4)
  - Pulmonary artery stenosis congenital [Recovered/Resolved]
  - Atrial septal defect [Recovered/Resolved]
  - Small for dates baby [Recovered/Resolved]
  - Foetal exposure during pregnancy [Unknown]

NARRATIVE: CASE EVENT DATE: 20240401
